FAERS Safety Report 16827108 (Version 1)
Quarter: 2019Q3

REPORT INFORMATION
  Report Type: Spontaneous
  Country: US (occurrence: US)
  Receive Date: 20190729
  Receipt Date: 20190729
  Transmission Date: 20191005
  Serious: Yes (Hospitalization)
  Sender: FDA-Public Use
  Company Number: None

PATIENT
  Sex: Male

DRUGS (4)
  1. STELARA [Suspect]
     Active Substance: USTEKINUMAB
     Indication: PSORIATIC ARTHROPATHY
     Dosage: ?          OTHER FREQUENCY:Q 10 WKS;?
     Route: 058
     Dates: start: 20160616
  2. PRAVASTATIN TAB [Concomitant]
     Active Substance: PRAVASTATIN
  3. SYNTHROID TAB [Concomitant]
  4. CICLOPIROX SOL [Concomitant]

REACTIONS (1)
  - Myocardial infarction [None]
